FAERS Safety Report 9919811 (Version 1)
Quarter: 2014Q1

REPORT INFORMATION
  Report Type: Spontaneous
  Country: GB (occurrence: GB)
  Receive Date: 20140224
  Receipt Date: 20140224
  Transmission Date: 20141002
  Serious: Yes (Other)
  Sender: FDA-Public Use
  Company Number: GB-PFIZER INC-2014046773

PATIENT
  Age: 51 Year
  Sex: Male

DRUGS (5)
  1. VIAGRA [Suspect]
     Dosage: 100 MG, UNK
  2. DOXAZOSINE [Concomitant]
     Dosage: UNK
  3. PREDNISOLONE [Concomitant]
     Dosage: UNK
  4. CYCLOSPORIN [Concomitant]
  5. VIROXYN [Concomitant]

REACTIONS (3)
  - Spinal cord injury [Unknown]
  - Renal failure [Unknown]
  - Drug ineffective [Unknown]
